FAERS Safety Report 9264010 (Version 1)
Quarter: 2013Q2

REPORT INFORMATION
  Report Type: Other
  Country: GB (occurrence: GB)
  Receive Date: 20130430
  Receipt Date: 20130430
  Transmission Date: 20140414
  Serious: Yes (Other)
  Sender: FDA-Public Use
  Company Number: GB-ACTAVIS-2013-07074

PATIENT
  Age: 28 Year
  Sex: Female

DRUGS (5)
  1. SALBUTAMOL (UNKNOWN) [Suspect]
     Indication: ASTHMA
     Dosage: 100 MG, UNKNOWN, AS NECESSARY
     Route: 055
  2. SUBUTEX [Suspect]
     Indication: DRUG ABUSE
     Dosage: 12 MG, DAILY
     Route: 060
     Dates: start: 20061201, end: 20070223
  3. QVAR [Suspect]
     Indication: ASTHMA
     Dosage: 200 MG, BID
     Route: 055
     Dates: start: 20060609
  4. DOMPERIDONE [Concomitant]
     Indication: MALAISE
     Dosage: 10 MG, TID
     Route: 048
     Dates: start: 20070105
  5. CEFACLOR [Concomitant]
     Indication: URINARY TRACT INFECTION
     Dosage: 250 MG, TID
     Route: 048
     Dates: start: 20070417

REACTIONS (4)
  - Foetal death [Recovered/Resolved]
  - Urinary tract infection [Unknown]
  - Malaise [Unknown]
  - Exposure during pregnancy [Recovered/Resolved]
